FAERS Safety Report 8472511-3 (Version None)
Quarter: 2012Q2

REPORT INFORMATION
  Report Type: 
  Country: None (occurrence: None)
  Receive Date: 20120622
  Receipt Date: 20120622
  Transmission Date: 20120825
  Serious: Yes (Hospitalization)
  Sender: FDA-Public Use
  Company Number: None

PATIENT
  Sex: Male
  Weight: 77.5 kg

DRUGS (1)
  1. PEGASYS [Suspect]
     Dosage: 90 MCG WEEKLY SUBCUTANEOUS
     Route: 058
     Dates: start: 20110427, end: 20120119

REACTIONS (3)
  - MALAISE [None]
  - PLATELET COUNT DECREASED [None]
  - PYREXIA [None]
